FAERS Safety Report 8346552-0 (Version None)
Quarter: 2012Q2

REPORT INFORMATION
  Report Type: 
  Country: None (occurrence: None)
  Receive Date: 20120509
  Receipt Date: 20120427
  Transmission Date: 20120825
  Serious: Yes (Other)
  Sender: FDA-Public Use
  Company Number: PHHY2012BR037317

PATIENT
  Age: 68 Year
  Sex: Female
  Weight: 45 kg

DRUGS (3)
  1. FORMOTEROL FUMARATE [Suspect]
     Indication: ASTHMA
     Dosage: CAPSULES OF THE TREATMENT, 1 IN THE MORNING AND 2 CAPSULES OF THE TREATMENT AT NIGHT.
  2. FORMOTEROL FUMARATE [Suspect]
     Dosage: CAPSULE OF EACH TREATMENT 2 TIMES DAILY (IN THE MORNING AND AT NIGHT)
  3. INFLUENZA VIRUS VACC SEASONAL INN [Suspect]
     Indication: IMMUNISATION
     Dosage: 1 DF
     Route: 030
     Dates: start: 20110505, end: 20110505

REACTIONS (9)
  - DIABETES MELLITUS [None]
  - SWELLING [None]
  - DYSPNOEA [None]
  - OROPHARYNGEAL PAIN [None]
  - FEELING ABNORMAL [None]
  - PULMONARY CONGESTION [None]
  - HEPATIC STEATOSIS [None]
  - INFLUENZA [None]
  - PNEUMONIA [None]
